FAERS Safety Report 18512545 (Version 1)
Quarter: 2020Q4

REPORT INFORMATION
  Report Type: Spontaneous
  Country: JP (occurrence: JP)
  Receive Date: 20201117
  Receipt Date: 20201117
  Transmission Date: 20210114
  Serious: Yes (Other)
  Sender: FDA-Public Use
  Company Number: JP-LUPIN PHARMACEUTICALS INC.-2020-09159

PATIENT
  Age: 80 Year
  Sex: Male

DRUGS (1)
  1. LANTHANUM [Suspect]
     Active Substance: LANTHANUM
     Indication: DRUG THERAPY
     Dosage: 750 MILLIGRAM, QD
     Route: 048

REACTIONS (3)
  - Gastric disorder [Not Recovered/Not Resolved]
  - Gastritis erosive [Not Recovered/Not Resolved]
  - Chronic gastritis [Not Recovered/Not Resolved]
